FAERS Safety Report 18928632 (Version 2)
Quarter: 2021Q1

REPORT INFORMATION
  Report Type: Spontaneous
  Country: US (occurrence: US)
  Receive Date: 20210223
  Receipt Date: 20210329
  Transmission Date: 20210420
  Serious: No
  Sender: FDA-Public Use
  Company Number: US-PFIZER INC-2021026051

PATIENT
  Age: 71 Year
  Sex: Female

DRUGS (1)
  1. ZIRABEV [Suspect]
     Active Substance: BEVACIZUMAB-BVZR
     Indication: COLON CANCER
     Dosage: 360 MG, CYCLIC (EVERY 2 WEEKS)

REACTIONS (1)
  - Neoplasm progression [Unknown]
